FAERS Safety Report 5484067-8 (Version None)
Quarter: 2007Q4

REPORT INFORMATION
  Report Type: 
  Country: None (occurrence: None)
  Receive Date: 20071012
  Receipt Date: 20071002
  Transmission Date: 20080405
  Serious: Yes (Hospitalization)
  Sender: FDA-Public Use
  Company Number: US-ROCHE-523102

PATIENT
  Age: 52 Year
  Sex: Male
  Weight: 79.1 kg

DRUGS (2)
  1. CAPECITABINE [Suspect]
     Indication: RECTAL CANCER
     Dosage: ADMINISTERED ON RADIATION DAYS ONLY
     Route: 048
     Dates: start: 20060514, end: 20060620
  2. IRINOTECAN HCL [Suspect]
     Indication: RECTAL CANCER
     Dosage: ADMINISTERED ON DAYS 1,8,22,29 OF RADIATION
     Route: 042
     Dates: start: 20060515, end: 20060612

REACTIONS (1)
  - PROCTALGIA [None]
